FAERS Safety Report 5612263-5 (Version None)
Quarter: 2008Q1

REPORT INFORMATION
  Report Type: 
  Country: None (occurrence: None)
  Receive Date: 20080128
  Receipt Date: 20080119
  Transmission Date: 20080703
  Serious: Yes (Other)
  Sender: FDA-Public Use
  Company Number: 2008AP000217

PATIENT
  Age: 72 Year
  Sex: Male

DRUGS (4)
  1. ENALAPRIL MALEATE [Suspect]
     Indication: HYPERTENSION
     Dosage: PO
     Route: 048
  2. GLIPIZIDE [Suspect]
     Indication: TYPE 2 DIABETES MELLITUS
     Dosage: 5 MG; PO; Q12H
     Route: 048
  3. CALCIUM CHANNEL BLOCKERS                        (CALCIUM CHANNEL BLOCK [Concomitant]
  4. ALPHA-ADRENOCEPTOR BLOCKING AGENTS [Concomitant]

REACTIONS (2)
  - DRUG INTERACTION [None]
  - PANCYTOPENIA [None]
